FAERS Safety Report 13848537 (Version 1)
Quarter: 2017Q3

REPORT INFORMATION
  Report Type: Spontaneous
  Country: US (occurrence: US)
  Receive Date: 20170809
  Receipt Date: 20170809
  Transmission Date: 20171127
  Serious: No
  Sender: FDA-Public Use
  Company Number: None

PATIENT

DRUGS (2)
  1. CANGRELOR [Suspect]
     Active Substance: CANGRELOR
  2. CORLANOR [Suspect]
     Active Substance: IVABRADINE HYDROCHLORIDE

REACTIONS (1)
  - Product name confusion [None]
